FAERS Safety Report 6471695-6 (Version None)
Quarter: 2009Q4

REPORT INFORMATION
  Report Type: 
  Country: None (occurrence: None)
  Receive Date: 20091203
  Receipt Date: 20080820
  Transmission Date: 20100525
  Serious: Yes (Death, Other)
  Sender: FDA-Public Use
  Company Number: JP-ELI_LILLY_AND_COMPANY-JP200803005755

PATIENT
  Sex: Male
  Weight: 66 kg

DRUGS (9)
  1. GEMZAR [Suspect]
     Indication: BILE DUCT CANCER
     Dosage: 1600 MG, UNK
     Route: 042
     Dates: start: 20080310, end: 20080310
  2. GEMZAR [Suspect]
     Dosage: 1400 MG, UNK
     Route: 042
     Dates: start: 20080317, end: 20080317
  3. DEPAKENE [Concomitant]
     Route: 065
  4. CALONAL [Concomitant]
     Route: 048
     Dates: start: 20080301
  5. LOXONIN [Concomitant]
     Route: 048
     Dates: start: 20080305
  6. ALDACTONE [Concomitant]
     Route: 048
     Dates: start: 20080306
  7. TAKEPRON [Concomitant]
     Route: 048
     Dates: start: 20080306
  8. URSO 250 [Concomitant]
     Route: 048
     Dates: start: 20080307
  9. TAURINE [Concomitant]
     Route: 048
     Dates: start: 20080315

REACTIONS (6)
  - DRUG ERUPTION [None]
  - ERYTHEMA [None]
  - HAEMOGLOBIN DECREASED [None]
  - MALIGNANT NEOPLASM PROGRESSION [None]
  - PLATELET COUNT DECREASED [None]
  - WHITE BLOOD CELL COUNT DECREASED [None]
